FAERS Safety Report 4734603-1 (Version None)
Quarter: 2005Q3

REPORT INFORMATION
  Report Type: 
  Country: None (occurrence: None)
  Receive Date: 20050804
  Receipt Date: 20050729
  Transmission Date: 20060218
  Serious: Yes (Life-Threatening)
  Sender: FDA-Public Use
  Company Number: 2005AP04131

PATIENT
  Age: 25701 Day
  Sex: Female

DRUGS (1)
  1. NEXIUM [Suspect]
     Indication: OESOPHAGEAL DISORDER
     Route: 048

REACTIONS (5)
  - LOSS OF CONSCIOUSNESS [None]
  - NAUSEA [None]
  - RENAL FAILURE [None]
  - SYNCOPE [None]
  - VOMITING [None]
